FAERS Safety Report 9790366 (Version 1)
Quarter: 2013Q4

REPORT INFORMATION
  Report Type: Spontaneous
  Country: ES (occurrence: ES)
  Receive Date: 20131231
  Receipt Date: 20131231
  Transmission Date: 20140711
  Serious: Yes (Other)
  Sender: FDA-Public Use
  Company Number: ES-009507513-1312ESP010416

PATIENT
  Age: 48 Year
  Sex: Male

DRUGS (4)
  1. NASONEX [Suspect]
     Indication: RHINITIS ALLERGIC
     Dosage: 2 PULSACIONES C/24H
     Route: 045
     Dates: start: 2012, end: 20131113
  2. SINGULAIR 10 MG COMPRIMIDOS RECUBIERTOS CON PEL?CULA [Concomitant]
     Dosage: 10 MG, QD
     Route: 048
  3. CONDRO SAN [Concomitant]
     Dosage: 800 MG, QD
     Route: 048
  4. RAMIPRIL [Concomitant]
     Indication: HYPERTENSION
     Route: 048

REACTIONS (1)
  - Cataract [Not Recovered/Not Resolved]
